FAERS Safety Report 9003995 (Version 4)
Quarter: 2013Q4

REPORT INFORMATION
  Report Type: Report from Study
  Country: US (occurrence: US)
  Receive Date: 20130108
  Receipt Date: 20131002
  Transmission Date: 20140711
  Serious: Yes (Hospitalization, Other)
  Sender: FDA-Public Use
  Company Number: US-ALEXION PHARMACEUTICALS INC.-A201202549

PATIENT
  Age: 14 Year
  Sex: Female
  Weight: 17.1 kg

DRUGS (25)
  1. SOLIRIS [Suspect]
     Indication: HAEMOLYTIC URAEMIC SYNDROME
     Dosage: 300 MG, Q2W
     Route: 042
  2. LOMOTIL [Concomitant]
     Indication: DIARRHOEA
     Dosage: 2.5-0.25 MG, QD
     Route: 048
     Dates: start: 20130108
  3. PROGRAF [Concomitant]
     Dosage: 0.75 MG, BID
     Route: 048
     Dates: start: 201211
  4. TENORMIN [Concomitant]
     Dosage: 12.5 MG, QD
     Route: 048
     Dates: start: 20121114
  5. DELTASONE [Concomitant]
     Dosage: 10 MG, QD
     Route: 048
     Dates: start: 20121220, end: 20130108
  6. DELTASONE [Concomitant]
     Dosage: 8.5 MG, QD
     Route: 048
     Dates: start: 20130108
  7. LACTOBACILLUS [Concomitant]
     Dosage: 1 DF, 1 TABLET QD
     Route: 048
  8. ZOFRAN [Concomitant]
     Dosage: 2 MG, PRN EVERY 8 HOURS
     Route: 048
  9. NORVASC [Concomitant]
     Dosage: 5 MG, BID
     Route: 048
     Dates: start: 20121218
  10. PROTONIX [Concomitant]
     Dosage: 20 MG, BID
     Route: 048
     Dates: start: 20121218
  11. TYLENOL [Concomitant]
     Indication: PAIN
     Dosage: 650 MG, PRN
     Route: 048
     Dates: start: 20121213
  12. SINGULAIR [Concomitant]
     Dosage: 5 MG, QD AT BEDTIME
     Route: 048
     Dates: start: 20121127
  13. IMURAN [Concomitant]
     Dosage: 20 MG, BID
     Route: 048
     Dates: start: 20121127
  14. VALCYTE [Concomitant]
     Dosage: 160 MG, QD
     Route: 048
     Dates: start: 20121127
  15. MIRALAX [Concomitant]
     Dosage: 8 G, PRN BID
     Dates: start: 20121127
  16. BACTRIM [Concomitant]
     Dosage: 32 MG, QD
     Route: 048
     Dates: start: 20121127
  17. NYSTATIN [Concomitant]
     Dosage: 300000 UNITS SWISH AND SWALLOW QID
     Route: 048
     Dates: start: 20121127
  18. AMOXICILLIN [Concomitant]
     Dosage: 200 MG, BID
     Route: 048
     Dates: start: 20121127
  19. SYNTHROID [Concomitant]
     Dosage: 25 MEQ, QD
     Route: 048
     Dates: start: 20110914
  20. ZYRTEC [Concomitant]
     Dosage: 5 MG, QD
     Route: 048
  21. PULMICORT [Concomitant]
     Dosage: 1 AMPULE DF, BID
     Dates: start: 20120110
  22. OMNICEF [Concomitant]
     Dosage: 600 MG, QD
     Route: 048
     Dates: start: 20121222
  23. EMLA [Concomitant]
     Route: 061
  24. XOPENEX [Concomitant]
  25. MENINGOCOCCAL VACCINE [Concomitant]
     Indication: IMMUNISATION
     Dosage: UNK
     Dates: start: 20120504, end: 20120504

REACTIONS (12)
  - Hypothyroidism [Unknown]
  - Gastroenteritis viral [Recovered/Resolved]
  - Renal transplant [Recovering/Resolving]
  - Renal failure [Unknown]
  - Pyrexia [Recovering/Resolving]
  - Hypertension [Unknown]
  - C-reactive protein increased [Recovering/Resolving]
  - Hyperuricaemia [Unknown]
  - Cough [Recovering/Resolving]
  - Haemoglobin decreased [Unknown]
  - Haematocrit decreased [Unknown]
  - Respirovirus test positive [Unknown]
